FAERS Safety Report 20187230 (Version 1)
Quarter: 2021Q4

REPORT INFORMATION
  Report Type: Spontaneous
  Country: US (occurrence: None)
  Receive Date: 20211214
  Receipt Date: 20211214
  Transmission Date: 20220303
  Serious: Yes (Hospitalization)
  Sender: FDA-Public Use
  Company Number: None

PATIENT
  Age: 43 Year
  Sex: Female

DRUGS (13)
  1. AVONEX PEN [Suspect]
     Active Substance: INTERFERON BETA-1A
     Indication: Multiple sclerosis
     Dosage: FREQUENCY : WEEKLY;?
     Route: 028
     Dates: start: 20170720
  2. AMITRIPTYLIN [Concomitant]
  3. COVID-19 TES SPECIMEN [Concomitant]
  4. CYCLOBENZAPR [Concomitant]
  5. VITAMIN D3 [Concomitant]
     Active Substance: CHOLECALCIFEROL
  6. DALFAMRIDIN ER [Concomitant]
  7. DICLOFENAC GEL [Concomitant]
  8. GABAPENTIN [Concomitant]
  9. IBUPROFEN [Concomitant]
  10. MELOXICAM [Concomitant]
  11. METHOCARBAM [Concomitant]
  12. OMEPRAZOLE [Concomitant]
  13. OYSCO 500+D [Concomitant]

REACTIONS (2)
  - Therapy interrupted [None]
  - Disease recurrence [None]

NARRATIVE: CASE EVENT DATE: 20211204
